FAERS Safety Report 4751624-3 (Version None)
Quarter: 2005Q3

REPORT INFORMATION
  Report Type: 
  Country: None (occurrence: None)
  Receive Date: 20050822
  Receipt Date: 20050801
  Transmission Date: 20060218
  Serious: Yes (Death)
  Sender: FDA-Public Use
  Company Number: 6016468

PATIENT
  Age: 38 Year
  Sex: Female

DRUGS (1)
  1. MERCK FLECAINIDE (100 MG TABLET) (FLECAINIDE) [Suspect]
     Indication: OVERDOSE
     Dosage: 60 DOSAGE FORMS (60 DOSAGE FORMS, 1 IN 1 D) ORAL
     Route: 048
     Dates: start: 20050717, end: 20050717

REACTIONS (7)
  - BLOOD ALCOHOL INCREASED [None]
  - BLOOD PRESSURE IMMEASURABLE [None]
  - CARDIAC ARREST [None]
  - CARDIAC PACEMAKER MALFUNCTION [None]
  - DRUG TOXICITY [None]
  - HEART RATE DECREASED [None]
  - OVERDOSE [None]
